FAERS Safety Report 14478385 (Version 1)
Quarter: 2018Q1

REPORT INFORMATION
  Report Type: Report from Study
  Country: ZA (occurrence: ZA)
  Receive Date: 20180202
  Receipt Date: 20180202
  Transmission Date: 20180509
  Serious: Yes (Death, Life-Threatening, Hospitalization)
  Sender: FDA-Public Use
  Company Number: ZA-AMGEN-ZAFSL2018014397

PATIENT
  Sex: Male

DRUGS (1)
  1. ARANESP [Suspect]
     Active Substance: DARBEPOETIN ALFA
     Indication: CHRONIC KIDNEY DISEASE
     Dosage: 20 MUG, Q2WK
     Route: 058
     Dates: start: 201202, end: 201707

REACTIONS (2)
  - Cardiac disorder [Unknown]
  - Disease complication [Fatal]
